FAERS Safety Report 25001570 (Version 1)
Quarter: 2025Q1

REPORT INFORMATION
  Report Type: Report from Study
  Country: CA (occurrence: CA)
  Receive Date: 20250223
  Receipt Date: 20250223
  Transmission Date: 20250409
  Serious: Yes (Other)
  Sender: ABBVIE
  Company Number: CA-ABBVIE-5865094

PATIENT
  Age: 58 Year
  Sex: Female

DRUGS (6)
  1. VYALEV [Suspect]
     Active Substance: FOSCARBIDOPA\FOSLEVODOPA
     Indication: Parkinson^s disease
     Route: 058
  2. VYALEV [Suspect]
     Active Substance: FOSCARBIDOPA\FOSLEVODOPA
     Route: 058
     Dates: start: 20240610
  3. AMANTADINE [Concomitant]
     Active Substance: AMANTADINE
     Indication: Product used for unknown indication
     Dates: start: 20240802
  4. CELECOXIB [Concomitant]
     Active Substance: CELECOXIB
     Indication: Product used for unknown indication
  5. CARBIDOPA\LEVODOPA [Concomitant]
     Active Substance: CARBIDOPA\LEVODOPA
     Indication: Product used for unknown indication
  6. ADVIL [Concomitant]
     Active Substance: IBUPROFEN
     Indication: Product used for unknown indication

REACTIONS (16)
  - Skin necrosis [Unknown]
  - Limb injury [Not Recovered/Not Resolved]
  - Catheter site discolouration [Recovered/Resolved]
  - Injection site pain [Unknown]
  - Catheter site papule [Unknown]
  - Infection [Unknown]
  - Injection site reaction [Recovering/Resolving]
  - Injection site erythema [Not Recovered/Not Resolved]
  - Hypersensitivity [Unknown]
  - Musculoskeletal disorder [Not Recovered/Not Resolved]
  - Musculoskeletal discomfort [Not Recovered/Not Resolved]
  - Catheter site infection [Not Recovered/Not Resolved]
  - Rash papular [Not Recovered/Not Resolved]
  - Increased tendency to bruise [Not Recovered/Not Resolved]
  - Catheter site discomfort [Unknown]
  - Sensitive skin [Unknown]

NARRATIVE: CASE EVENT DATE: 20240101
